FAERS Safety Report 5535252-8 (Version None)
Quarter: 2007Q4

REPORT INFORMATION
  Report Type: 
  Country: None (occurrence: None)
  Receive Date: 20071206
  Receipt Date: 20071127
  Transmission Date: 20080405
  Serious: Yes (Hospitalization)
  Sender: FDA-Public Use
  Company Number: US-KINGPHARMUSA00001-K200701525

PATIENT

DRUGS (32)
  1. ALTACE [Suspect]
     Dosage: 1.25 MG, QD
     Route: 048
     Dates: start: 20071025, end: 20071102
  2. ACLOVIR [Concomitant]
     Dosage: 200 MG, UNK
     Route: 048
     Dates: start: 20071101
  3. ALLOPURINOL [Concomitant]
     Dosage: 125 MG, UNK
     Route: 048
     Dates: start: 20071018, end: 20071021
  4. ALLOPURINOL [Concomitant]
     Dosage: 300 MG, UNK
     Route: 048
     Dates: start: 20071018, end: 20071024
  5. ARTHROTEC [Concomitant]
     Dosage: 75 MG, UNK
     Route: 048
     Dates: start: 20071105, end: 20071107
  6. CHLORHEXIDINE GLUCONATE [Concomitant]
     Dosage: 10 ML, UNK
     Route: 048
     Dates: start: 20070924, end: 20071026
  7. CITALOPRAM HYDROBROMIDE [Concomitant]
     Dosage: 20 MG, UNK
     Route: 048
     Dates: start: 20071101
  8. CLINDAMYCIN HCL [Concomitant]
     Dosage: 600 MG, UNK
     Route: 042
  9. CYCLIZINE [Concomitant]
     Dosage: 50 MG, UNK
     Route: 048
     Dates: start: 20071111, end: 20071112
  10. ENOXAPARIN SODIUM [Concomitant]
     Dosage: 40 MG, UNK
     Route: 058
     Dates: start: 20071018, end: 20071021
  11. FLUCONAZOLE [Concomitant]
     Dosage: 100 MG, UNK
     Route: 048
     Dates: start: 20070924, end: 20071026
  12. FUROSEMIDE [Concomitant]
     Dosage: 80 MG, UNK
     Route: 042
     Dates: start: 20071012, end: 20071012
  13. FUROSEMIDE [Concomitant]
     Dosage: 40 MG, UNK
     Route: 048
     Dates: start: 20071022
  14. GABAPENTIN [Concomitant]
     Dosage: 300 MG, UNK
     Route: 048
     Dates: start: 20071105, end: 20071106
  15. ITRACONAZOLE [Concomitant]
     Dosage: 200 MG, UNK
     Route: 048
     Dates: start: 20071018
  16. GENTAMICIN [Concomitant]
     Dosage: 400 MG, UNK
     Route: 042
     Dates: start: 20071019, end: 20071021
  17. LANSOPRAZOLE [Concomitant]
     Dosage: 30 MG, UNK
     Route: 048
     Dates: start: 20071018
  18. LENOGRASTIM [Concomitant]
     Dosage: 268 UG, UNK
     Dates: start: 20071019
  19. MEDROXYPROGESTERONE [Concomitant]
     Dosage: 10 MG, UNK
     Route: 048
     Dates: start: 20071107
  20. MEROPENEM [Concomitant]
     Dosage: 1 G, UNK
     Route: 042
     Dates: start: 20071019, end: 20071029
  21. METOCLOPRAMIDE [Concomitant]
     Dosage: 10 MG, UNK
     Route: 042
     Dates: start: 20071112
  22. METRONIDAZOLE [Concomitant]
     Dosage: 400 MG, UNK
     Route: 048
     Dates: start: 20071018, end: 20071113
  23. NORETHISTERONE [Concomitant]
     Dosage: 10 MG, UNK
     Route: 048
     Dates: start: 20071107, end: 20071109
  24. NYSTATIN [Concomitant]
     Dosage: 1 ML, UNK
     Route: 048
     Dates: start: 20070924, end: 20071026
  25. PREDNISOLONE [Concomitant]
     Dosage: 100 MG, UNK
     Route: 048
     Dates: start: 20071019, end: 20071023
  26. ALBUTEROL [Concomitant]
     Dosage: 5 MG, UNK
     Dates: start: 20071012, end: 20071024
  27. SPIRONOLACTONE [Concomitant]
     Dosage: 25 MG, UNK
     Route: 048
     Dates: start: 20071025, end: 20071108
  28. TAZOCIN [Concomitant]
     Dosage: 4.5 G, UNK
     Route: 042
     Dates: start: 20071018, end: 20071019
  29. TEICOPLANIN [Concomitant]
     Dosage: 400 MG, UNK
     Route: 042
     Dates: start: 20071019, end: 20071113
  30. TINZAPARIN [Concomitant]
     Dosage: .7 ML, UNK
     Route: 058
     Dates: start: 20071029, end: 20071101
  31. VALSARTAN [Concomitant]
     Dosage: 40 MG, UNK
     Route: 048
     Dates: start: 20071105, end: 20071107
  32. RASBURICASE [Concomitant]
     Dosage: 15 MG, UNK
     Route: 042
     Dates: start: 20070920, end: 20070920

REACTIONS (1)
  - CONFUSIONAL STATE [None]
